FAERS Safety Report 13188904 (Version 1)
Quarter: 2017Q1

REPORT INFORMATION
  Report Type: Spontaneous
  Country: US (occurrence: US)
  Receive Date: 20170206
  Receipt Date: 20170206
  Transmission Date: 20170428
  Serious: Yes (Hospitalization, Other)
  Sender: FDA-Public Use
  Company Number: US-HORIZON-VIM-0013-2017

PATIENT
  Age: 72 Year
  Sex: Female

DRUGS (4)
  1. OMEGA 3 FATTY ACIDS [Concomitant]
     Active Substance: OMEGA-3 FATTY ACIDS
  2. COENZYME Q10 [Concomitant]
     Active Substance: UBIDECARENONE
  3. CRESTOR [Concomitant]
     Active Substance: ROSUVASTATIN CALCIUM
     Dosage: 10 MG
  4. VIMOVO [Suspect]
     Active Substance: ESOMEPRAZOLE MAGNESIUM\NAPROXEN
     Indication: TENDON DISORDER
     Dosage: 1 TABLET TWICE DAILY
     Route: 048

REACTIONS (9)
  - Enterocolitis [Recovering/Resolving]
  - Hypotension [Unknown]
  - Vaginal fistula [Unknown]
  - Off label use [Unknown]
  - Hypertension [Unknown]
  - Urinary tract infection enterococcal [Recovering/Resolving]
  - Malaise [Not Recovered/Not Resolved]
  - Small intestinal obstruction [Recovering/Resolving]
  - Vaginal flatulence [Unknown]

NARRATIVE: CASE EVENT DATE: 20170107
